FAERS Safety Report 9225481 (Version 2)
Quarter: 2013Q2

REPORT INFORMATION
  Report Type: Report from Study
  Country: SE (occurrence: SE)
  Receive Date: 20130411
  Receipt Date: 20130624
  Transmission Date: 20140414
  Serious: Yes (Disabling)
  Sender: FDA-Public Use
  Company Number: SE-ROCHE-1211449

PATIENT
  Sex: 0

DRUGS (2)
  1. ALTEPLASE [Suspect]
     Indication: PERIPHERAL ISCHAEMIA
     Route: 013
  2. HEPARIN LEO [Suspect]
     Indication: PERIPHERAL ISCHAEMIA
     Route: 013

REACTIONS (1)
  - Leg amputation [Unknown]
